FAERS Safety Report 7903175-2 (Version None)
Quarter: 2011Q4

REPORT INFORMATION
  Report Type: 
  Country: None (occurrence: None)
  Receive Date: 20111103
  Receipt Date: 20111027
  Transmission Date: 20120403
  Serious: Yes (Hospitalization)
  Sender: FDA-Public Use
  Company Number: 2011SP044205

PATIENT
  Age: 17 Year
  Sex: Female

DRUGS (1)
  1. SAPHRIS [Suspect]
     Indication: PRODUCT USED FOR UNKNOWN INDICATION
     Dosage: QD;PO
     Route: 048
     Dates: start: 20110809, end: 20110912

REACTIONS (3)
  - HEADACHE [None]
  - SENSORY LOSS [None]
  - PAIN IN EXTREMITY [None]
